FAERS Safety Report 5856910-1 (Version None)
Quarter: 2008Q3

REPORT INFORMATION
  Report Type: 
  Country: None (occurrence: None)
  Receive Date: 20080818
  Receipt Date: 20080521
  Transmission Date: 20090109
  Serious: No
  Sender: FDA-Public Use
  Company Number: WAES 0805USA04738

PATIENT
  Age: 65 Year
  Sex: Female

DRUGS (5)
  1. JANUVIA [Suspect]
     Indication: TYPE 2 DIABETES MELLITUS
     Dosage: 100 MG/DAILY/PO
     Route: 048
     Dates: start: 20080519
  2. CARDIZEM [Concomitant]
  3. DIOVAN [Concomitant]
  4. LASIX [Concomitant]
  5. PROCARDIA [Concomitant]

REACTIONS (1)
  - BLOOD GLUCOSE ABNORMAL [None]
